FAERS Safety Report 8074877-5 (Version None)
Quarter: 2012Q1

REPORT INFORMATION
  Report Type: 
  Country: None (occurrence: None)
  Receive Date: 20120126
  Receipt Date: 20120123
  Transmission Date: 20120608
  Serious: Yes (Life-Threatening)
  Sender: FDA-Public Use
  Company Number: FR-ASTRAZENECA-2012SE04736

PATIENT
  Age: 24268 Day
  Sex: Male

DRUGS (11)
  1. SKENAN LP [Concomitant]
  2. IRINOTECAN HCL [Concomitant]
     Indication: COLON CANCER
     Route: 042
     Dates: start: 20110501
  3. XYLOCAINE [Suspect]
     Indication: LOCAL ANAESTHESIA
     Route: 058
     Dates: start: 20111214, end: 20111214
  4. SILODYX [Concomitant]
     Indication: BENIGN PROSTATIC HYPERPLASIA
     Route: 048
  5. CITALOPRAM HYDROBROMIDE [Concomitant]
     Route: 048
  6. CALCIUM CARBONATE [Concomitant]
     Route: 048
  7. XYZAL [Concomitant]
     Route: 048
  8. MORPHINE SULFATE [Concomitant]
     Route: 048
  9. QUESTRAN [Concomitant]
     Route: 048
  10. NEXIUM [Concomitant]
     Route: 048
  11. PENTASA [Concomitant]
     Route: 048

REACTIONS (4)
  - CONVULSION [None]
  - CARDIAC ARREST [None]
  - VENTRICULAR FIBRILLATION [None]
  - BRUGADA SYNDROME [None]
